FAERS Safety Report 24443831 (Version 2)
Quarter: 2024Q4

REPORT INFORMATION
  Report Type: Report from Study
  Country: US (occurrence: US)
  Receive Date: 20241016
  Receipt Date: 20241017
  Transmission Date: 20250114
  Serious: No
  Sender: ROCHE
  Company Number: US-ROCHE-2146609

PATIENT
  Age: 51 Year
  Sex: Male

DRUGS (2)
  1. RITUXAN [Suspect]
     Active Substance: RITUXIMAB
     Indication: Dermatomyositis
     Dosage: INFUSE 1000MG INTRAVENOUSLY ON DAY(S) 1 AND DAY(S) 15 EVERY 6 MONTH(S)?DATE OF TREATMENT: 15/AUG/201
     Route: 042
  2. RITUXAN [Suspect]
     Active Substance: RITUXIMAB
     Indication: Interstitial lung disease
     Dosage: MOST RECENT DOSE: 26/MAR/2024
     Route: 042
     Dates: start: 20240220

REACTIONS (2)
  - Off label use [Unknown]
  - No adverse event [Unknown]
